FAERS Safety Report 5321011-8 (Version None)
Quarter: 2007Q2

REPORT INFORMATION
  Report Type: 
  Country: None (occurrence: None)
  Receive Date: 20070510
  Receipt Date: 20070430
  Transmission Date: 20071010
  Serious: Yes (Hospitalization, Other)
  Sender: FDA-Public Use
  Company Number: HQWYE664719APR07

PATIENT
  Age: 59 Year
  Sex: Male
  Weight: 65.8 kg

DRUGS (3)
  1. MYLOTARG [Suspect]
     Indication: ACUTE MYELOID LEUKAEMIA
     Dosage: 10.44 MG TOTAL DOSE ADMINISTERED
     Route: 042
     Dates: start: 20070331, end: 20070331
  2. CYTARABINE [Suspect]
     Indication: ACUTE MYELOID LEUKAEMIA
     Dosage: 1218 MG TOTAL DOSE ADMINISTERED
     Route: 042
     Dates: start: 20070328, end: 20070403
  3. DAUNORUBICIN HCL [Suspect]
     Indication: ACUTE MYELOID LEUKAEMIA
     Dosage: 234.9 MG TOTAL DOSE ADMINISTERED
     Route: 042
     Dates: start: 20070328, end: 20070330

REACTIONS (6)
  - CHEST PAIN [None]
  - HAEMOTHORAX [None]
  - PLATELET DISORDER [None]
  - PLEURAL EFFUSION [None]
  - URINARY BLADDER HAEMORRHAGE [None]
  - WHITE BLOOD CELL DISORDER [None]
